FAERS Safety Report 11136906 (Version 1)
Quarter: 2015Q2

REPORT INFORMATION
  Report Type: Spontaneous
  Country: IN (occurrence: IN)
  Receive Date: 20150526
  Receipt Date: 20150526
  Transmission Date: 20150821
  Serious: Yes (Other)
  Sender: FDA-Public Use
  Company Number: IN-AUROBINDO-AUR-APL-2015-04533

PATIENT
  Age: 48 Year
  Sex: Female

DRUGS (2)
  1. CARVEDILOL. [Suspect]
     Active Substance: CARVEDILOL
     Indication: OESOPHAGEAL HAEMORRHAGE
  2. CARVEDILOL. [Suspect]
     Active Substance: CARVEDILOL
     Indication: GASTRIC HAEMORRHAGE
     Dosage: UNK
     Route: 065

REACTIONS (3)
  - Gastric haemorrhage [Recovered/Resolved]
  - Oesophageal haemorrhage [Recovered/Resolved]
  - Drug ineffective [Recovered/Resolved]
